FAERS Safety Report 6695407-6 (Version None)
Quarter: 2010Q2

REPORT INFORMATION
  Report Type: 
  Country: None (occurrence: None)
  Receive Date: 20100422
  Receipt Date: 20100422
  Transmission Date: 20101027
  Serious: Yes (Other)
  Sender: FDA-Public Use
  Company Number: None

PATIENT
  Age: 51 Year
  Sex: Female
  Weight: 58.9676 kg

DRUGS (1)
  1. ACTONEL [Suspect]
     Dosage: 150MG
     Dates: start: 20100405

REACTIONS (11)
  - ABDOMINAL PAIN UPPER [None]
  - APHAGIA [None]
  - BACK PAIN [None]
  - DYSSTASIA [None]
  - FATIGUE [None]
  - HYPERHIDROSIS [None]
  - IMPAIRED WORK ABILITY [None]
  - INFLUENZA LIKE ILLNESS [None]
  - MUSCULOSKELETAL STIFFNESS [None]
  - RASH PRURITIC [None]
  - VOMITING [None]
